FAERS Safety Report 10160890 (Version 3)
Quarter: 2014Q3

REPORT INFORMATION
  Report Type: Spontaneous
  Country: DE (occurrence: DE)
  Receive Date: 20140508
  Receipt Date: 20140702
  Transmission Date: 20150326
  Serious: Yes (Hospitalization, Other)
  Sender: FDA-Public Use
  Company Number: DE-ALLERGAN-1408306US

PATIENT
  Age: 59 Year
  Sex: Female

DRUGS (1)
  1. OZURDEX [Suspect]
     Active Substance: DEXAMETHASONE
     Indication: UVEITIS
     Dosage: 0.7 MG, SINGLE
     Route: 031
     Dates: start: 20140404, end: 20140423

REACTIONS (3)
  - Eye pain [Unknown]
  - Device dislocation [Recovered/Resolved]
  - Corneal decompensation [Recovered/Resolved]

NARRATIVE: CASE EVENT DATE: 20140420
